FAERS Safety Report 14758431 (Version 1)
Quarter: 2018Q2

REPORT INFORMATION
  Report Type: Report from Study
  Country: DE (occurrence: DE)
  Receive Date: 20180413
  Receipt Date: 20180413
  Transmission Date: 20180711
  Serious: Yes (Other)
  Sender: FDA-Public Use
  Company Number: DE-PURDUE-GBR-2018-0054857

PATIENT
  Sex: Female
  Weight: 62 kg

DRUGS (8)
  1. TARGIN [Suspect]
     Active Substance: NALOXONE HYDROCHLORIDE\OXYCODONE HYDROCHLORIDE
     Indication: RESTLESS LEGS SYNDROME
     Dosage: 2.5 MG, BID
     Route: 048
  2. SIFROL [Suspect]
     Active Substance: PRAMIPEXOLE
     Indication: RESTLESS LEGS SYNDROME
     Dosage: 1.05 MG, QD
     Route: 048
  3. VOTRIENT [Suspect]
     Active Substance: PAZOPANIB HYDROCHLORIDE
     Dosage: 800 MG, QD
     Route: 048
     Dates: start: 20170126, end: 20170502
  4. PRAMIPEXOL [Concomitant]
     Active Substance: PRAMIPEXOLE
     Indication: PRODUCT USED FOR UNKNOWN INDICATION
     Dosage: UNK, UNK
     Route: 065
  5. VOTRIENT [Suspect]
     Active Substance: PAZOPANIB HYDROCHLORIDE
     Dosage: 400 MG, QD
     Route: 048
     Dates: start: 20170503, end: 20171130
  6. METOHEXAL [Suspect]
     Active Substance: METOPROLOL SUCCINATE
     Indication: HYPERTENSION
     Dosage: 142.5 MG, QD
     Route: 048
  7. AMLODIPINE [Concomitant]
     Active Substance: AMLODIPINE BESYLATE
     Indication: HYPERTENSION
     Dosage: 5 MG, BID
     Route: 048
  8. VOTRIENT [Suspect]
     Active Substance: PAZOPANIB HYDROCHLORIDE
     Indication: METASTATIC RENAL CELL CARCINOMA
     Dosage: UNK, QD
     Route: 048
     Dates: start: 20171201

REACTIONS (1)
  - Gamma-glutamyltransferase increased [Recovering/Resolving]

NARRATIVE: CASE EVENT DATE: 20170303
